FAERS Safety Report 9556765 (Version 1)
Quarter: 2013Q3

REPORT INFORMATION
  Report Type: Spontaneous
  Country: US (occurrence: None)
  Receive Date: 20130726
  Receipt Date: 20130726
  Transmission Date: 20140515
  Serious: Yes (Hospitalization)
  Sender: FDA-Public Use
  Company Number: UTC-010279

PATIENT
  Age: 27 Year
  Sex: Female

DRUGS (3)
  1. REMODULIN (INJECTION FOR INFUSION) (TREPROSTINIL SODIUM) [Suspect]
     Indication: PULMONARY ARTERIAL HYPERTENSION
     Dosage: 205.92 UG/KG (0.143 UG/KG, 1 IN 1 MIN) , SUBCUTANEOUS
     Route: 058
  2. ADCIRCA (TADALAFIAL) [Concomitant]
  3. BOSENTAN (BOSENTAN) [Concomitant]

REACTIONS (2)
  - Haemoptysis [None]
  - Platelet function test abnormal [None]
